FAERS Safety Report 4875277-9 (Version None)
Quarter: 2006Q1

REPORT INFORMATION
  Report Type: 
  Country: None (occurrence: None)
  Receive Date: 20060109
  Receipt Date: 20030605
  Transmission Date: 20060701
  Serious: Yes (Hospitalization, Disabling, Other)
  Sender: FDA-Public Use
  Company Number: US-MERCK-0306USA00640

PATIENT
  Age: 62 Year
  Sex: Female
  Weight: 77 kg

DRUGS (15)
  1. VIOXX [Suspect]
     Indication: ARTHRITIS
     Route: 048
     Dates: start: 20000101, end: 20010801
  2. VIOXX [Suspect]
     Route: 048
  3. VIOXX [Suspect]
     Route: 048
  4. DETROL [Concomitant]
     Route: 065
  5. PREVACID [Concomitant]
     Route: 065
  6. CLARITIN-D [Concomitant]
     Route: 065
  7. PREMARIN [Concomitant]
     Route: 065
  8. MAXZIDE [Concomitant]
     Route: 065
     Dates: end: 20010124
  9. XANAX [Concomitant]
     Route: 065
  10. ASPIRIN [Concomitant]
     Route: 065
  11. NITROGLYCERIN [Concomitant]
     Route: 065
  12. LASIX [Concomitant]
     Route: 065
  13. CIPRO [Concomitant]
     Route: 065
  14. PROPULSID [Concomitant]
     Route: 065
  15. PRILOSEC [Concomitant]
     Route: 065

REACTIONS (47)
  - ABDOMINAL PAIN [None]
  - ABDOMINAL PAIN UPPER [None]
  - ADRENAL ADENOMA [None]
  - ADRENAL CYST [None]
  - ARRHYTHMIA [None]
  - ARTERIAL OCCLUSIVE DISEASE [None]
  - ARTHRALGIA [None]
  - BACK PAIN [None]
  - BLOOD PRESSURE INCREASED [None]
  - BLOOD TRIGLYCERIDES INCREASED [None]
  - CARDIAC FAILURE CONGESTIVE [None]
  - CARDIOMEGALY [None]
  - CELLULITIS [None]
  - CHEST PAIN [None]
  - CHOLECYSTITIS [None]
  - CHOLELITHIASIS [None]
  - DEPRESSION [None]
  - DILATATION ATRIAL [None]
  - DIZZINESS [None]
  - DYSPNOEA [None]
  - EXOSTOSIS [None]
  - FLATULENCE [None]
  - GALLBLADDER DISORDER [None]
  - GASTROOESOPHAGEAL REFLUX DISEASE [None]
  - GLUCOSE TOLERANCE IMPAIRED [None]
  - GOITRE [None]
  - HAEMORRHOIDS [None]
  - HEADACHE [None]
  - HEPATIC STEATOSIS [None]
  - HERNIA [None]
  - INCONTINENCE [None]
  - JOINT SWELLING [None]
  - MITRAL VALVE INCOMPETENCE [None]
  - MYOCARDIAL INFARCTION [None]
  - NASOPHARYNGITIS [None]
  - OSTEOARTHRITIS [None]
  - POLYTRAUMATISM [None]
  - POOR PERIPHERAL CIRCULATION [None]
  - PRODUCTIVE COUGH [None]
  - PULMONARY EMBOLISM [None]
  - SPINAL OSTEOARTHRITIS [None]
  - TACHYCARDIA [None]
  - THYROID DISORDER [None]
  - ULCER [None]
  - VAGINAL INFECTION [None]
  - VENTRICULAR HYPERTROPHY [None]
  - VISION BLURRED [None]
